FAERS Safety Report 8806778 (Version 2)
Quarter: 2014Q3

REPORT INFORMATION
  Report Type: Report from Study
  Country: US (occurrence: US)
  Receive Date: 20120925
  Receipt Date: 20140903
  Transmission Date: 20150326
  Serious: Yes (Hospitalization, Other)
  Sender: FDA-Public Use
  Company Number: US-ROCHE-1123296

PATIENT
  Sex: Female
  Weight: 71 kg

DRUGS (7)
  1. TAXOL [Concomitant]
     Active Substance: PACLITAXEL
  2. MEGACE [Concomitant]
     Active Substance: MEGESTROL ACETATE
  3. AVASTIN [Suspect]
     Active Substance: BEVACIZUMAB
     Indication: MALIGNANT RESPIRATORY TRACT NEOPLASM
     Route: 065
     Dates: start: 20050621
  4. ARANESP [Concomitant]
     Active Substance: DARBEPOETIN ALFA
  5. AVASTIN [Suspect]
     Active Substance: BEVACIZUMAB
     Indication: LUNG NEOPLASM MALIGNANT
  6. CARBOPLATIN. [Concomitant]
     Active Substance: CARBOPLATIN
  7. ADRIAMYCIN [Concomitant]
     Active Substance: DOXORUBICIN HYDROCHLORIDE

REACTIONS (2)
  - Disease progression [Unknown]
  - Respiratory failure [Unknown]
